FAERS Safety Report 7338316-1 (Version None)
Quarter: 2011Q1

REPORT INFORMATION
  Report Type: 
  Country: None (occurrence: None)
  Receive Date: 20110308
  Receipt Date: 20110222
  Transmission Date: 20110831
  Serious: Yes (Hospitalization)
  Sender: FDA-Public Use
  Company Number: IT-CELGENEUS-083-20785-11022663

PATIENT
  Sex: Male

DRUGS (10)
  1. THALIDOMIDE [Suspect]
     Indication: MULTIPLE MYELOMA
     Dosage: 100 MILLIGRAM
     Route: 048
     Dates: start: 20100212, end: 20110209
  2. ALLOPURINOL [Concomitant]
     Dosage: 300 MILLIGRAM
     Route: 065
  3. TICLOPIDINE HCL [Concomitant]
     Dosage: 250 MILLIGRAM
     Route: 065
  4. CLEXANE [Concomitant]
     Route: 065
  5. CARDIOVASC [Concomitant]
     Route: 065
  6. ARANESP [Concomitant]
     Route: 065
  7. PANTOPRAZOLE [Concomitant]
     Dosage: 40 MILLIGRAM
     Route: 065
  8. TORVAST [Concomitant]
     Route: 065
  9. FUROSEMIDE [Concomitant]
     Dosage: 50 MILLIGRAM
     Route: 065
  10. POTASSIUM CHLORIDE [Concomitant]
     Route: 065

REACTIONS (1)
  - MENINGITIS PNEUMOCOCCAL [None]
